FAERS Safety Report 5090821-7 (Version None)
Quarter: 2006Q3

REPORT INFORMATION
  Report Type: 
  Country: None (occurrence: None)
  Receive Date: 20060823
  Receipt Date: 20060810
  Transmission Date: 20061208
  Serious: Yes (Death, Hospitalization)
  Sender: FDA-Public Use
  Company Number: HQWYE360411AUG06

PATIENT
  Age: 29 Year
  Sex: Male

DRUGS (5)
  1. RAPAMUNE [Suspect]
     Indication: RENAL TRANSPLANT
     Dosage: 2 MG 1X PER 1 DAY ORAL
     Route: 048
     Dates: start: 20050729, end: 20060625
  2. MYCOPHENOLATE MOFETIL [Suspect]
     Indication: IMMUNOSUPPRESSANT DRUG THERAPY
     Dosage: 250 MG 2X PER 1 DAY
     Dates: start: 20050729, end: 20060625
  3. PREDNISOLONE [Suspect]
     Indication: IMMUNOSUPPRESSANT DRUG THERAPY
     Dosage: 5 MG 1X PER 1 DAY
     Dates: start: 20050729, end: 20060625
  4. TACROLIMUS (TACROLIMUS,) [Suspect]
     Indication: IMMUNOSUPPRESSANT DRUG THERAPY
     Dosage: 5 MG 1X PER 12 HR
     Dates: start: 20050729, end: 20060625
  5. NORVASC [Concomitant]

REACTIONS (9)
  - CARDIAC ARREST [None]
  - CARDIAC FAILURE [None]
  - CELLULITIS [None]
  - DIARRHOEA [None]
  - LOWER GASTROINTESTINAL HAEMORRHAGE [None]
  - PAIN IN EXTREMITY [None]
  - RESPIRATORY FAILURE [None]
  - SEPTIC SHOCK [None]
  - WOUND INFECTION PSEUDOMONAS [None]
